FAERS Safety Report 5659663-5 (Version None)
Quarter: 2008Q1

REPORT INFORMATION
  Report Type: 
  Country: None (occurrence: None)
  Receive Date: 20080311
  Receipt Date: 20080305
  Transmission Date: 20080703
  Serious: Yes (Life-Threatening, Hospitalization)
  Sender: FDA-Public Use
  Company Number: JP-ASTRAZENECA-2008AP00861

PATIENT
  Age: 49 Year
  Sex: Female
  Weight: 67 kg

DRUGS (11)
  1. IRESSA [Suspect]
     Indication: LUNG ADENOCARCINOMA
     Route: 048
     Dates: start: 20080110, end: 20080122
  2. VOLTAREN [Suspect]
     Indication: PYREXIA
     Route: 054
     Dates: start: 20080123, end: 20080123
  3. VOLTAREN [Suspect]
     Route: 054
     Dates: start: 20080124, end: 20080124
  4. VOLTAREN [Suspect]
     Route: 054
     Dates: start: 20080125, end: 20080125
  5. ROCEPHIN [Concomitant]
     Indication: PYREXIA
     Route: 042
     Dates: start: 20080123, end: 20080123
  6. ROCEPHIN [Concomitant]
     Route: 042
     Dates: start: 20080124, end: 20080124
  7. CRAVIT [Concomitant]
     Indication: PYREXIA
     Route: 048
     Dates: start: 20080124, end: 20080128
  8. OMEGACIN [Concomitant]
     Indication: PYREXIA
     Route: 041
     Dates: start: 20080124, end: 20080131
  9. FAMOTIDINE [Concomitant]
     Indication: GASTRITIS
     Route: 048
     Dates: start: 20080129, end: 20080129
  10. FAMOTIDINE [Concomitant]
     Route: 048
     Dates: start: 20080130
  11. FAMOTIDINE [Concomitant]
     Route: 042
     Dates: start: 20080125, end: 20080128

REACTIONS (4)
  - PLATELET COUNT DECREASED [None]
  - PULMONARY OEDEMA [None]
  - PYREXIA [None]
  - RASH [None]
